FAERS Safety Report 7953359-2 (Version None)
Quarter: 2011Q4

REPORT INFORMATION
  Report Type: 
  Country: None (occurrence: None)
  Receive Date: 20111202
  Receipt Date: 20111117
  Transmission Date: 20120403
  Serious: Yes (Other)
  Sender: FDA-Public Use
  Company Number: DE-BIOGENIDEC-2011BI014699

PATIENT
  Age: 33 Year
  Sex: Female
  Weight: 79 kg

DRUGS (5)
  1. IBUPROFEN [Concomitant]
     Route: 048
     Dates: start: 20080101, end: 20110301
  2. IBUPROFEN [Concomitant]
     Indication: PROPHYLAXIS
     Route: 048
     Dates: start: 20070301, end: 20080101
  3. AVONEX [Suspect]
     Indication: MULTIPLE SCLEROSIS
     Dosage: UNKNOWN
     Route: 030
     Dates: start: 20070301, end: 20110301
  4. MIRTAZAPINE [Concomitant]
     Indication: DEPRESSION
     Route: 048
     Dates: start: 20100901, end: 20110401
  5. VENLAFAXINE [Concomitant]
     Indication: DEPRESSION
     Route: 048
     Dates: start: 20100901, end: 20110301

REACTIONS (1)
  - CAESAREAN SECTION [None]
